FAERS Safety Report 4816805-9 (Version None)
Quarter: 2005Q4

REPORT INFORMATION
  Report Type: 
  Country: None (occurrence: None)
  Receive Date: 20051031
  Receipt Date: 20051031
  Transmission Date: 20060501
  Serious: No
  Sender: FDA-Public Use
  Company Number: None

PATIENT
  Age: 74 Year
  Sex: Male
  Weight: 118 kg

DRUGS (3)
  1. CEFTRIAXONE [Suspect]
     Indication: DECUBITUS ULCER
     Dosage: 1 GM Q24HRS IV X 10
     Route: 042
     Dates: start: 20050805, end: 20050815
  2. CEFTRIAXONE [Suspect]
     Indication: WOUND INFECTION
     Dosage: 1 GM Q24HRS IV X 10
     Route: 042
     Dates: start: 20050805, end: 20050815
  3. VANCOMYCIN [Concomitant]

REACTIONS (1)
  - CLOSTRIDIUM COLITIS [None]
